FAERS Safety Report 24232323 (Version 1)
Quarter: 2024Q3

REPORT INFORMATION
  Report Type: Spontaneous
  Country: BE (occurrence: BE)
  Receive Date: 20240821
  Receipt Date: 20240821
  Transmission Date: 20241017
  Serious: Yes (Hospitalization, Other)
  Sender: ACCORD
  Company Number: BE-EMA-DD-20240730-7482653-064835

PATIENT
  Age: 73 Year
  Sex: Male

DRUGS (9)
  1. METHOTREXATE [Suspect]
     Active Substance: METHOTREXATE
     Indication: Immune-mediated enterocolitis
     Dosage: UNK
  2. AZITHROMYCIN [Suspect]
     Active Substance: AZITHROMYCIN
     Indication: Immune-mediated enterocolitis
     Dosage: 500 MILLIGRAM, QD
  3. GANCICLOVIR [Suspect]
     Active Substance: GANCICLOVIR
     Indication: Cytomegalovirus viraemia
     Dosage: 5 MILLIGRAM/KILOGRAM, BID
  4. INFLIXIMAB [Suspect]
     Active Substance: INFLIXIMAB
     Indication: Immune-mediated enterocolitis
     Dosage: 10 MG/KG BODY WEIGHT
  5. MYCOPHENOLATE MOFETIL [Suspect]
     Active Substance: MYCOPHENOLATE MOFETIL
     Indication: Immune-mediated enterocolitis
     Dosage: UNK
  6. PEMBROLIZUMAB [Suspect]
     Active Substance: PEMBROLIZUMAB
     Indication: Bladder transitional cell carcinoma stage IV
     Dosage: 200 MILLIGRAM, 3XW
  7. VEDOLIZUMAB [Suspect]
     Active Substance: VEDOLIZUMAB
     Indication: Immune-mediated enterocolitis
  8. PREDNISOLONE [Concomitant]
     Active Substance: PREDNISOLONE
     Indication: Immune-mediated lung disease
     Dosage: 1 MILLIGRAM/KILOGRAM
  9. ENFORTUMAB VEDOTIN [Concomitant]
     Active Substance: ENFORTUMAB VEDOTIN
     Indication: Transitional cell carcinoma
     Dosage: 1.25 MG/KG BODY WEIGHT ON DAY 1 AND 8 OF A 3-WEEKLY REGIMEN (CYCLICAL)

REACTIONS (8)
  - Sepsis [Unknown]
  - Colitis ulcerative [Recovered/Resolved]
  - Campylobacter infection [Recovered/Resolved]
  - Immune-mediated lung disease [Recovered/Resolved]
  - Drug ineffective for unapproved indication [Unknown]
  - Cachexia [Unknown]
  - Device related infection [Unknown]
  - Product use issue [Unknown]
